FAERS Safety Report 4903887-9 (Version None)
Quarter: 2006Q1

REPORT INFORMATION
  Report Type: 
  Country: None (occurrence: None)
  Receive Date: 20060208
  Receipt Date: 20050719
  Transmission Date: 20060701
  Serious: No
  Sender: FDA-Public Use
  Company Number: US-GLAXOSMITHKLINE-A0567104A

PATIENT
  Age: 35 Year
  Sex: Female

DRUGS (3)
  1. PAXIL [Suspect]
     Indication: PANIC DISORDER
     Dosage: 5MG PER DAY
     Route: 048
  2. PAROXETINE HCL [Suspect]
     Indication: PANIC DISORDER
     Route: 048
  3. SYNTHROID [Concomitant]
     Route: 065

REACTIONS (8)
  - DIZZINESS [None]
  - DRUG EXPOSURE DURING PREGNANCY [None]
  - DRUG INEFFECTIVE [None]
  - DRUG WITHDRAWAL SYNDROME [None]
  - HEADACHE [None]
  - INFLUENZA LIKE ILLNESS [None]
  - PAIN [None]
  - PERFORMANCE STATUS DECREASED [None]
